FAERS Safety Report 9897372 (Version 5)
Quarter: 2014Q2

REPORT INFORMATION
  Report Type: Spontaneous
  Country: US (occurrence: US)
  Receive Date: 20140214
  Receipt Date: 20140616
  Transmission Date: 20141212
  Serious: Yes (Other)
  Sender: FDA-Public Use
  Company Number: US-JNJFOC-20140205169

PATIENT
  Sex: Female
  Weight: 73.48 kg

DRUGS (8)
  1. REMICADE [Suspect]
     Indication: CROHN^S DISEASE
     Dosage: TOTAL DOSE 375  MG
     Route: 042
     Dates: start: 2005
  2. PLETAL [Concomitant]
     Route: 065
  3. LOMOTIL [Concomitant]
     Route: 065
  4. FENOFIBRATE [Concomitant]
     Route: 065
  5. LEXAPRO [Concomitant]
     Route: 065
  6. SPIRONOLACTONE [Concomitant]
     Route: 065
  7. VITAMIN D [Concomitant]
     Route: 065
  8. TRAMADON [Concomitant]
     Route: 065

REACTIONS (1)
  - Lung neoplasm malignant [Not Recovered/Not Resolved]
